FAERS Safety Report 10668091 (Version 1)
Quarter: 2014Q4

REPORT INFORMATION
  Report Type: Spontaneous
  Country: FR (occurrence: None)
  Receive Date: 20141218
  Receipt Date: 20141218
  Transmission Date: 20150529
  Serious: Yes (Hospitalization)
  Sender: FDA-Public Use
  Company Number: 2663397

PATIENT
  Age: 46 Year
  Sex: Female

DRUGS (4)
  1. DOXORUBICINE ACCORD [Suspect]
     Active Substance: DOXORUBICIN
     Indication: EWING^S SARCOMA
     Dates: start: 20140530
  2. ETOPOSIDE. [Suspect]
     Active Substance: ETOPOSIDE
     Indication: EWING^S SARCOMA
     Dates: start: 20140530
  3. IFOSFAMIDE. [Suspect]
     Active Substance: IFOSFAMIDE
     Indication: EWING^S SARCOMA
     Dates: start: 20140530
  4. VINCRISTINE SULFATE. [Suspect]
     Active Substance: VINCRISTINE SULFATE
     Indication: EWING^S SARCOMA
     Dates: start: 20140530

REACTIONS (3)
  - Febrile neutropenia [None]
  - Mucosal inflammation [None]
  - Weight decreased [None]

NARRATIVE: CASE EVENT DATE: 201406
